FAERS Safety Report 9746524 (Version 1)
Quarter: 2013Q4

REPORT INFORMATION
  Report Type: Spontaneous
  Country: ES (occurrence: ES)
  Receive Date: 20131211
  Receipt Date: 20131211
  Transmission Date: 20140711
  Serious: Yes (Other)
  Sender: FDA-Public Use
  Company Number: ES-BAYER-2013-151442

PATIENT
  Age: 40 Year
  Sex: Female

DRUGS (5)
  1. ACTIRA [Suspect]
     Dosage: 400 MG, UNK
     Dates: start: 20131126, end: 20131127
  2. OMEPRAZOL [Concomitant]
  3. FUROSEMIDE [Concomitant]
  4. LOSARTAN [Concomitant]
     Dosage: 50 MG, UNK
  5. TOCILIZUMAB [Concomitant]

REACTIONS (4)
  - Pain in extremity [Not Recovered/Not Resolved]
  - Local swelling [Not Recovered/Not Resolved]
  - Pain in extremity [Not Recovered/Not Resolved]
  - Abasia [Not Recovered/Not Resolved]
